FAERS Safety Report 11112439 (Version 1)
Quarter: 2015Q2

REPORT INFORMATION
  Report Type: Spontaneous
  Country: DE (occurrence: DE)
  Receive Date: 20150514
  Receipt Date: 20150514
  Transmission Date: 20150821
  Serious: Yes (Death, Life-Threatening)
  Sender: FDA-Public Use
  Company Number: DE-CELGENE-DEU-2014126075

PATIENT
  Age: 50 Year
  Sex: Female

DRUGS (5)
  1. TRASTUZUMAB [Concomitant]
     Active Substance: TRASTUZUMAB
     Indication: BREAST CANCER
     Route: 065
     Dates: start: 201209
  2. BISPHOSPHONATE [Concomitant]
     Active Substance: UNSPECIFIED INGREDIENT
     Indication: PRODUCT USED FOR UNKNOWN INDICATION
     Route: 065
  3. ABRAXANE [Suspect]
     Active Substance: PACLITAXEL
     Indication: BREAST CANCER
     Route: 041
     Dates: start: 20121205, end: 201304
  4. LETROZOL [Concomitant]
     Active Substance: LETROZOLE
     Indication: BREAST CANCER
     Route: 065
  5. LAPATINIB [Concomitant]
     Active Substance: LAPATINIB
     Indication: BREAST CANCER
     Route: 065

REACTIONS (3)
  - Multi-organ failure [Fatal]
  - Metastases to meninges [Fatal]
  - Neuropathy peripheral [Not Recovered/Not Resolved]

NARRATIVE: CASE EVENT DATE: 201304
